FAERS Safety Report 4421996-8 (Version None)
Quarter: 2004Q3

REPORT INFORMATION
  Report Type: 
  Country: None (occurrence: None)
  Receive Date: 20040709
  Receipt Date: 20040120
  Transmission Date: 20050211
  Serious: Yes (Other)
  Sender: FDA-Public Use
  Company Number: US-SHR-04-019949

PATIENT
  Age: 46 Year
  Sex: Female

DRUGS (1)
  1. ULTRAVIST 300 [Suspect]
     Indication: COMPUTERISED TOMOGRAM
     Dosage: 72 ML, 1 DOSE, INTRAVENOUS
     Route: 042
     Dates: start: 20030313, end: 20030313

REACTIONS (6)
  - BLOOD PRESSURE DECREASED [None]
  - CONFUSIONAL STATE [None]
  - DISORIENTATION [None]
  - FLUSHING [None]
  - RESPIRATORY DISTRESS [None]
  - SNEEZING [None]
